FAERS Safety Report 15364995 (Version 1)
Quarter: 2018Q3

REPORT INFORMATION
  Report Type: Spontaneous
  Country: GB (occurrence: GB)
  Receive Date: 20180910
  Receipt Date: 20180910
  Transmission Date: 20181010
  Serious: Yes (Other)
  Sender: FDA-Public Use
  Company Number: GB-ROCHE-2180488

PATIENT
  Age: 21 Year
  Sex: Male

DRUGS (2)
  1. OMALIZUMAB. [Suspect]
     Active Substance: OMALIZUMAB
     Indication: POSTURAL ORTHOSTATIC TACHYCARDIA SYNDROME
  2. OMALIZUMAB. [Suspect]
     Active Substance: OMALIZUMAB
     Indication: MAST CELL ACTIVATION SYNDROME
     Route: 058

REACTIONS (5)
  - Erythromelalgia [Unknown]
  - Product use in unapproved indication [Unknown]
  - Hyperhidrosis [Unknown]
  - Diarrhoea [Unknown]
  - Postural orthostatic tachycardia syndrome [Unknown]
